FAERS Safety Report 5647629-0 (Version None)
Quarter: 2008Q1

REPORT INFORMATION
  Report Type: 
  Country: None (occurrence: None)
  Receive Date: 20080131
  Receipt Date: 20071226
  Transmission Date: 20080703
  Serious: No
  Sender: FDA-Public Use
  Company Number: 163-21880-07121434

PATIENT
  Age: 52 Year
  Sex: Male

DRUGS (3)
  1. REVLIMID [Suspect]
     Indication: MULTIPLE MYELOMA
     Dosage: 25 MG, DAILY X 21/28 DAYS, ORAL
     Route: 048
     Dates: start: 20070728
  2. ASPIRIN [Concomitant]
  3. DEXAMETHASONE TAB [Concomitant]

REACTIONS (2)
  - FATIGUE [None]
  - TREMOR [None]
